FAERS Safety Report 10559483 (Version 1)
Quarter: 2014Q4

REPORT INFORMATION
  Report Type: Spontaneous
  Country: ES (occurrence: None)
  Receive Date: 20141030
  Receipt Date: 20141030
  Transmission Date: 20150529
  Serious: Yes (Death)
  Sender: FDA-Public Use
  Company Number: ESP-CLT-2004011

PATIENT
  Sex: Female

DRUGS (4)
  1. CYSTADANE [Suspect]
     Active Substance: BETAINE
     Indication: HOMOCYSTINURIA
     Dosage: EVERY DAY
     Route: 048
     Dates: start: 20011103, end: 20040619
  2. VITAMINE B12 [Concomitant]
  3. CARNITINE [Concomitant]
     Active Substance: CARNITINE
  4. CAPTOPRIL. [Concomitant]
     Active Substance: CAPTOPRIL

REACTIONS (5)
  - Drug ineffective [None]
  - Pseudomonal sepsis [None]
  - Inappropriate schedule of drug administration [None]
  - Urinary tract infection pseudomonal [None]
  - Off label use [None]
